FAERS Safety Report 8001244-2 (Version None)
Quarter: 2011Q4

REPORT INFORMATION
  Report Type: 
  Country: None (occurrence: None)
  Receive Date: 20111222
  Receipt Date: 20111212
  Transmission Date: 20120403
  Serious: Yes (Hospitalization, Other)
  Sender: FDA-Public Use
  Company Number: FR-ELI_LILLY_AND_COMPANY-FR201112002763

PATIENT
  Sex: Female

DRUGS (7)
  1. GEMZAR [Suspect]
     Indication: BRONCHIAL CARCINOMA
     Dosage: 1600 MG, UNKNOWN
     Route: 042
     Dates: start: 20110801
  2. PLAVIX [Concomitant]
     Dosage: 1 DF, QD
  3. ONDANSETRON [Concomitant]
     Dosage: 8 MG, UNK
     Route: 042
  4. MYFORTIC [Concomitant]
     Dosage: 1 DF, QD
  5. METHYLPREDNISOLONE [Concomitant]
     Dosage: 60 MG, UNK
  6. ATORVASTATIN CALCIUM [Concomitant]
     Dosage: 1 DF, QD
  7. PREDNISONE TAB [Concomitant]
     Dosage: 10 MG, QD

REACTIONS (3)
  - PLEURAL EFFUSION [None]
  - PULMONARY OEDEMA [None]
  - ACUTE CORONARY SYNDROME [None]
